FAERS Safety Report 19920145 (Version 2)
Quarter: 2021Q4

REPORT INFORMATION
  Report Type: Spontaneous
  Country: US (occurrence: US)
  Receive Date: 20211006
  Receipt Date: 20211022
  Transmission Date: 20220303
  Serious: Yes (Life-Threatening, Other)
  Sender: FDA-Public Use
  Company Number: 2021A753381

PATIENT
  Age: 30932 Day
  Sex: Male
  Weight: 64.9 kg

DRUGS (5)
  1. BUDESONIDE\FORMOTEROL\GLYCOPYRRONIUM [Suspect]
     Active Substance: BUDESONIDE\FORMOTEROL\GLYCOPYRRONIUM
     Indication: Chronic obstructive pulmonary disease
     Dosage: 160 AS REQUIRED AS REQUIRED
     Route: 055
     Dates: start: 20210916, end: 20210916
  2. NORTRIPTYLINE [Concomitant]
     Active Substance: NORTRIPTYLINE
     Route: 065
  3. BRUPROPRION [Concomitant]
     Dosage: 150
     Route: 065
  4. FLOMAX [Concomitant]
     Active Substance: TAMSULOSIN HYDROCHLORIDE
     Dosage: 0.4
     Route: 065
  5. O 2 [Concomitant]
     Indication: Hypoxia
     Dosage: 2L O2*90MIN SUPINE BEFORE PT ABLE TO SIT AND TALK COHERENTLY
     Route: 065
     Dates: start: 20210916, end: 20210916

REACTIONS (2)
  - Anaphylactic reaction [Recovered/Resolved]
  - Syncope [Recovered/Resolved]

NARRATIVE: CASE EVENT DATE: 20210916
